FAERS Safety Report 6508265-7 (Version None)
Quarter: 2009Q4

REPORT INFORMATION
  Report Type: 
  Country: None (occurrence: None)
  Receive Date: 20091221
  Receipt Date: 20081110
  Transmission Date: 20100525
  Serious: Yes (Other)
  Sender: FDA-Public Use
  Company Number: US-ASTRAZENECA-2008UW25050

PATIENT
  Sex: Female
  Weight: 62.6 kg

DRUGS (2)
  1. CRESTOR [Suspect]
     Indication: LOW DENSITY LIPOPROTEIN INCREASED
     Dosage: UNSURE OF DOSE
     Route: 048
     Dates: start: 20080101
  2. ZOLOFT [Concomitant]

REACTIONS (1)
  - TRANSIENT GLOBAL AMNESIA [None]
